FAERS Safety Report 15610569 (Version 1)
Quarter: 2018Q4

REPORT INFORMATION
  Report Type: Spontaneous
  Country: US (occurrence: US)
  Receive Date: 20181113
  Receipt Date: 20181113
  Transmission Date: 20190205
  Serious: No
  Sender: FDA-Public Use
  Company Number: US-ROCHE-2149797

PATIENT
  Sex: Male

DRUGS (1)
  1. PULMOZYME [Suspect]
     Active Substance: DORNASE ALFA
     Indication: PRODUCT USED FOR UNKNOWN INDICATION
     Dosage: DOSE: 1 MG/ML AMP
     Route: 065
     Dates: start: 20180601, end: 20180701

REACTIONS (2)
  - Product dose omission [Unknown]
  - Memory impairment [Unknown]
